FAERS Safety Report 7868049-4 (Version None)
Quarter: 2011Q4

REPORT INFORMATION
  Report Type: 
  Country: None (occurrence: None)
  Receive Date: 20111028
  Receipt Date: 20111024
  Transmission Date: 20120403
  Serious: Yes (Life-Threatening, Hospitalization)
  Sender: FDA-Public Use
  Company Number: BR-ASTRAZENECA-2011SE64456

PATIENT
  Age: 49 Year
  Sex: Male
  Weight: 103 kg

DRUGS (9)
  1. ATENOLOL [Suspect]
     Route: 048
  2. ROSUVASTATIN [Suspect]
     Route: 048
     Dates: start: 20100401
  3. CLONIDINE [Concomitant]
     Route: 048
  4. LOSARTAN POTASSIUM [Concomitant]
     Route: 048
  5. MINOXIDIL [Concomitant]
     Route: 048
  6. ATENOLOL [Suspect]
     Route: 048
  7. AMLODIPINE [Concomitant]
     Route: 048
  8. HYDROCHLOROTHIAZIDE [Concomitant]
     Route: 048
  9. SODIUM NITROPRUSSIDE [Concomitant]
     Route: 048

REACTIONS (9)
  - HYPERTENSIVE CRISIS [None]
  - DIASTOLIC DYSFUNCTION [None]
  - CEREBRAL HAEMORRHAGE [None]
  - HEMIPLEGIA [None]
  - LEFT VENTRICULAR HYPERTROPHY [None]
  - HYPOAESTHESIA [None]
  - HAEMORRHAGIC STROKE [None]
  - HYPERTENSION [None]
  - WEIGHT DECREASED [None]
